FAERS Safety Report 18889212 (Version 1)
Quarter: 2021Q1

REPORT INFORMATION
  Report Type: Other
  Country: US (occurrence: US)
  Receive Date: 20210212
  Receipt Date: 20210212
  Transmission Date: 20210420
  Serious: Yes (Hospitalization)
  Sender: FDA-Public Use
  Company Number: US-INTERCEPT-PM2021000289

PATIENT
  Sex: Female

DRUGS (5)
  1. URSO [Concomitant]
     Active Substance: URSODIOL
     Indication: PRIMARY BILIARY CHOLANGITIS
  2. OCALIVA [Suspect]
     Active Substance: OBETICHOLIC ACID
     Dosage: 5 MILLIGRAM, QD
     Route: 048
     Dates: start: 20210121, end: 202101
  3. AMITIZA [Concomitant]
     Active Substance: LUBIPROSTONE
     Dosage: UNK, QD
  4. OCALIVA [Suspect]
     Active Substance: OBETICHOLIC ACID
     Dosage: 5 MILLIGRAM, QD
     Route: 048
     Dates: start: 20210129
  5. LACTULOSE. [Concomitant]
     Active Substance: LACTULOSE
     Dosage: UNK, QD

REACTIONS (5)
  - Therapy interrupted [Recovered/Resolved]
  - Product prescribing error [Not Recovered/Not Resolved]
  - Nausea [Unknown]
  - Intestinal obstruction [Unknown]
  - Vomiting [Unknown]

NARRATIVE: CASE EVENT DATE: 2021
